FAERS Safety Report 9524173 (Version 1)
Quarter: 2013Q3

REPORT INFORMATION
  Report Type: Spontaneous
  Country: CA (occurrence: CA)
  Receive Date: 20130916
  Receipt Date: 20130916
  Transmission Date: 20140515
  Serious: Yes (Other)
  Sender: FDA-Public Use
  Company Number: CA-AMGEN-CANSP2013063800

PATIENT
  Age: 80 Year
  Sex: Female

DRUGS (10)
  1. ARANESP [Suspect]
     Indication: RENAL FAILURE CHRONIC
     Dosage: 30 MUG, UNK
     Route: 065
     Dates: start: 20040914
  2. LOSEC                              /00661201/ [Concomitant]
  3. TRAZODONE [Concomitant]
  4. TYLENOL                            /00020001/ [Concomitant]
  5. VITALUX                            /00322001/ [Concomitant]
  6. OMEGA 3                            /01334101/ [Concomitant]
  7. ASPIRIN [Concomitant]
     Dosage: 81 MG, UNK
  8. ATENOLOL [Concomitant]
  9. LASIX                              /00032601/ [Concomitant]
  10. CELEXA                             /00582602/ [Concomitant]

REACTIONS (1)
  - Cardiac failure congestive [Not Recovered/Not Resolved]
